FAERS Safety Report 5614007-X (Version None)
Quarter: 2008Q1

REPORT INFORMATION
  Report Type: 
  Country: None (occurrence: None)
  Receive Date: 20080205
  Receipt Date: 20080122
  Transmission Date: 20080703
  Serious: Yes (Hospitalization)
  Sender: FDA-Public Use
  Company Number: JP-ROCHE-486582

PATIENT
  Age: 65 Year
  Sex: Male

DRUGS (5)
  1. PEGASYS [Suspect]
     Route: 058
     Dates: start: 20070131, end: 20070131
  2. PEGASYS [Suspect]
     Route: 058
     Dates: start: 20070206, end: 20070206
  3. AMBROXOL HYDROCHLORIDE [Concomitant]
     Dosage: DRUG NAME: ZENBRON L.
     Route: 048
     Dates: start: 20070116, end: 20070213
  4. ALTAT [Concomitant]
     Route: 048
     Dates: start: 20070116, end: 20070213
  5. ATELEC [Concomitant]
     Route: 048
     Dates: start: 20070116, end: 20070213

REACTIONS (1)
  - TUBERCULOUS PLEURISY [None]
